FAERS Safety Report 17585034 (Version 3)
Quarter: 2023Q1

REPORT INFORMATION
  Report Type: Spontaneous
  Country: CA (occurrence: CA)
  Receive Date: 20200326
  Receipt Date: 20230207
  Transmission Date: 20230417
  Serious: Yes (Hospitalization, Other)
  Sender: FDA-Public Use
  Company Number: CA-NOVARTISPH-NVSC2020CA078482

PATIENT
  Age: 80 Year
  Sex: Female

DRUGS (8)
  1. SANDOSTATIN LAR DEPOT [Suspect]
     Active Substance: OCTREOTIDE ACETATE
     Indication: Carcinoid tumour
     Dosage: 30 MG, QMO
     Route: 065
  2. SANDOSTATIN LAR DEPOT [Suspect]
     Active Substance: OCTREOTIDE ACETATE
  3. SANDOSTATIN LAR DEPOT [Suspect]
     Active Substance: OCTREOTIDE ACETATE
  4. RAMIPRIL [Suspect]
     Active Substance: RAMIPRIL
     Indication: Blood pressure abnormal
     Dosage: 2.5 MG, QD
     Route: 065
  5. CYANOCOBALAMIN [Suspect]
     Active Substance: CYANOCOBALAMIN
     Indication: Vitamin B12 deficiency
     Dosage: UNK
     Route: 065
  6. DROPERIDOL [Suspect]
     Active Substance: DROPERIDOL
     Indication: Product used for unknown indication
     Dosage: UNK
     Route: 065
  7. LYRICA [Suspect]
     Active Substance: PREGABALIN
     Indication: Product used for unknown indication
     Dosage: UNK
     Route: 065
  8. ATROPINE SULFATE [Concomitant]
     Active Substance: ATROPINE SULFATE
     Indication: Product used for unknown indication
     Dosage: UNK,  (4 EVERY 1 DAYS)
     Route: 048

REACTIONS (21)
  - Apnoea [Not Recovered/Not Resolved]
  - Blood pressure increased [Not Recovered/Not Resolved]
  - Cyst [Not Recovered/Not Resolved]
  - Lip swelling [Not Recovered/Not Resolved]
  - Palpitations [Not Recovered/Not Resolved]
  - Pharyngeal oedema [Not Recovered/Not Resolved]
  - Procedural pain [Not Recovered/Not Resolved]
  - Skin depigmentation [Not Recovered/Not Resolved]
  - Blood pressure systolic increased [Not Recovered/Not Resolved]
  - Frequent bowel movements [Not Recovered/Not Resolved]
  - Gastrointestinal disorder [Not Recovered/Not Resolved]
  - Nephrolithiasis [Not Recovered/Not Resolved]
  - Pharyngeal swelling [Not Recovered/Not Resolved]
  - Arrhythmia [Not Recovered/Not Resolved]
  - Pruritus [Not Recovered/Not Resolved]
  - Dyspnoea [Not Recovered/Not Resolved]
  - Diarrhoea [Not Recovered/Not Resolved]
  - Abdominal pain lower [Not Recovered/Not Resolved]
  - Flatulence [Not Recovered/Not Resolved]
  - Rash [Not Recovered/Not Resolved]
  - Inappropriate schedule of product administration [Not Recovered/Not Resolved]
